FAERS Safety Report 16298608 (Version 3)
Quarter: 2019Q2

REPORT INFORMATION
  Report Type: Report from Study
  Country: DE (occurrence: DE)
  Receive Date: 20190510
  Receipt Date: 20190604
  Transmission Date: 20190711
  Serious: Yes (Hospitalization)
  Sender: FDA-Public Use
  Company Number: DE-PFIZER INC-2019068334

PATIENT
  Age: 50 Year
  Sex: Female
  Weight: 87 kg

DRUGS (3)
  1. DENOSUMAB [Suspect]
     Active Substance: DENOSUMAB
     Indication: METASTASIS
     Dosage: 120 MG, REPORTEDLY: Q29
     Route: 058
     Dates: start: 20190130
  2. FULVESTRANT. [Suspect]
     Active Substance: FULVESTRANT
     Indication: BREAST CANCER
     Dosage: 500 MG, REPORTEDLY: Q29
     Route: 030
     Dates: start: 20190130
  3. PALBOCICLIB [Suspect]
     Active Substance: PALBOCICLIB
     Indication: BREAST CANCER
     Dosage: 125 MG, REPORTEDLY: 1-21 Q29
     Route: 048
     Dates: start: 20190130, end: 20190211

REACTIONS (1)
  - Gastritis [Recovered/Resolved]

NARRATIVE: CASE EVENT DATE: 20190208
